FAERS Safety Report 8907242 (Version 1)
Quarter: 2012Q4

REPORT INFORMATION
  Report Type: 
  Country: US (occurrence: US)
  Receive Date: 20121114
  Receipt Date: 20121114
  Transmission Date: 20130627
  Serious: Yes (Hospitalization, Other)
  Sender: FDA-Public Use
  Company Number: US-PAR PHARMACEUTICAL, INC-2012SCPR004701

PATIENT

DRUGS (5)
  1. IBUPROFEN [Suspect]
     Indication: BACK PAIN
     Dosage: 800 mg, thrice a day
     Route: 065
  2. LISINOPRIL [Suspect]
     Indication: PRODUCT USED FOR UNKNOWN INDICATION
     Dosage: 10 mg daily
     Route: 065
  3. LISINOPRIL [Suspect]
     Dosage: 20 mg, qd
     Route: 065
  4. METOPROLOL [Concomitant]
     Indication: PRODUCT USED FOR UNKNOWN INDICATION
     Dosage: 25 mg, bid
     Route: 065
  5. ASPIRIN [Concomitant]
     Indication: PRODUCT USED FOR UNKNOWN INDICATION
     Dosage: 81 mg, qd
     Route: 065

REACTIONS (5)
  - Glomerulonephritis membranous [Recovering/Resolving]
  - Hypoaldosteronism [Recovering/Resolving]
  - Autonomic failure syndrome [Not Recovered/Not Resolved]
  - Renal salt-wasting syndrome [Recovering/Resolving]
  - Hypovolaemia [Recovering/Resolving]
